FAERS Safety Report 14842256 (Version 2)
Quarter: 2018Q3

REPORT INFORMATION
  Report Type: Spontaneous
  Country: US (occurrence: US)
  Receive Date: 20180503
  Receipt Date: 20180731
  Transmission Date: 20181010
  Serious: Yes (Hospitalization, Other)
  Sender: FDA-Public Use
  Company Number: US-AUROBINDO-AUR-APL-2018-022063

PATIENT
  Age: 12 Year
  Sex: Female

DRUGS (6)
  1. PREDNISONE. [Suspect]
     Active Substance: PREDNISONE
     Indication: CUTANEOUS LUPUS ERYTHEMATOSUS
     Dosage: 80 MILLIGRAM, ONCE A DAY
     Route: 048
  2. RISPERIDONE. [Suspect]
     Active Substance: RISPERIDONE
     Indication: AFFECTIVE DISORDER
  3. PREDNISONE. [Suspect]
     Active Substance: PREDNISONE
     Indication: MENTAL STATUS CHANGES
     Dosage: 40 MILLIGRAM
     Route: 042
  4. RISPERIDONE. [Suspect]
     Active Substance: RISPERIDONE
     Indication: PSYCHOTIC DISORDER
     Dosage: 0.5 MILLIGRAM, TWO TIMES A DAY
     Route: 065
  5. HYDROXYCHLOROQUINE [Concomitant]
     Active Substance: HYDROXYCHLOROQUINE
     Indication: CUTANEOUS LUPUS ERYTHEMATOSUS
     Dosage: 900 MILLIGRAM, EVERY FOUR HOUR
     Route: 065
  6. NYSTATIN. [Concomitant]
     Active Substance: NYSTATIN
     Indication: CUTANEOUS LUPUS ERYTHEMATOSUS
     Dosage: UNK, 3 TIMES A DAY
     Route: 065

REACTIONS (15)
  - Inappropriate affect [Recovered/Resolved]
  - Tearfulness [Recovered/Resolved]
  - Drooling [Recovered/Resolved]
  - Psychotic disorder [Recovered/Resolved]
  - Encephalitis [Recovered/Resolved]
  - Mental status changes [Recovered/Resolved]
  - Encephalopathy [Recovered/Resolved]
  - Insomnia [Recovered/Resolved]
  - Decreased eye contact [Recovered/Resolved]
  - Paranoia [Recovered/Resolved]
  - Hallucination, visual [Recovered/Resolved]
  - Disorientation [Recovered/Resolved]
  - Restlessness [Recovered/Resolved]
  - Hyperlipidaemia [Recovered/Resolved]
  - Anxiety [Recovered/Resolved]

NARRATIVE: CASE EVENT DATE: 20161219
